FAERS Safety Report 5087764-1 (Version None)
Quarter: 2006Q3

REPORT INFORMATION
  Report Type: 
  Country: None (occurrence: None)
  Receive Date: 20060824
  Receipt Date: 20060719
  Transmission Date: 20061208
  Serious: Yes (Hospitalization)
  Sender: FDA-Public Use
  Company Number: US-ROCHE-456110

PATIENT
  Age: 48 Year
  Sex: Male
  Weight: 88 kg

DRUGS (4)
  1. PEG-INTERFERON ALFA 2A (RO 25-8310) [Suspect]
     Route: 058
     Dates: start: 20050816
  2. RIBAVIRIN [Suspect]
     Route: 048
     Dates: start: 20050816
  3. GLUCOPHAGE [Concomitant]
     Dates: start: 20060103
  4. TYLENOL [Concomitant]

REACTIONS (9)
  - CULTURE URINE POSITIVE [None]
  - DECUBITUS ULCER [None]
  - DIABETES MELLITUS NON-INSULIN-DEPENDENT [None]
  - NITRITE URINE PRESENT [None]
  - OSTEOMYELITIS CHRONIC [None]
  - PROTEIN URINE PRESENT [None]
  - PYREXIA [None]
  - URINE LEUKOCYTE ESTERASE POSITIVE [None]
  - WHITE BLOOD CELLS URINE POSITIVE [None]
